FAERS Safety Report 21522314 (Version 1)
Quarter: 2022Q4

REPORT INFORMATION
  Report Type: Spontaneous
  Country: CA (occurrence: CA)
  Receive Date: 20221028
  Receipt Date: 20221028
  Transmission Date: 20230112
  Serious: Yes (Other)
  Sender: FDA-Public Use
  Company Number: CA-STRIDES ARCOLAB LIMITED-2022SP014207

PATIENT
  Age: 49 Year
  Sex: Female

DRUGS (6)
  1. AMANTADINE [Suspect]
     Active Substance: AMANTADINE
     Indication: Multiple sclerosis
     Dosage: 200 MILLIGRAM PER DAY
     Route: 048
     Dates: start: 2012
  2. BOTULINUM TOXIN NOS [Concomitant]
     Active Substance: BOTULINUM TOXIN NOS
     Indication: Muscle spasticity
     Dosage: UNK (EVERY THREE MONTHS)
     Route: 065
     Dates: start: 2013
  3. PREDNISOLONE ACETATE [Concomitant]
     Active Substance: PREDNISOLONE ACETATE
     Indication: Corneal oedema
     Dosage: 1 PERCENT (1 HOUR)
     Route: 061
  4. SODIUM CHLORIDE [Concomitant]
     Active Substance: SODIUM CHLORIDE
     Indication: Corneal oedema
     Dosage: 5 PERCENT, UNKNOWN (DROPS)
     Route: 061
  5. SODIUM CHLORIDE [Concomitant]
     Active Substance: SODIUM CHLORIDE
     Dosage: UNK (OINTMENT)
     Route: 061
  6. NATALIZUMAB [Concomitant]
     Active Substance: NATALIZUMAB
     Indication: Product used for unknown indication
     Dosage: UNK (ONE MONTH)
     Route: 065
     Dates: start: 2017

REACTIONS (2)
  - Corneal decompensation [Recovered/Resolved]
  - Off label use [Unknown]
